FAERS Safety Report 4972923-6 (Version None)
Quarter: 2006Q2

REPORT INFORMATION
  Report Type: 
  Country: None (occurrence: None)
  Receive Date: 20060414
  Receipt Date: 20060406
  Transmission Date: 20061013
  Serious: Yes (Hospitalization)
  Sender: FDA-Public Use
  Company Number: US-JNJFOC-20060401581

PATIENT
  Sex: Female

DRUGS (11)
  1. REMICADE [Suspect]
     Indication: RHEUMATOID ARTHRITIS
     Route: 042
  2. METHOTREXATE [Concomitant]
  3. FOLIC ACID [Concomitant]
  4. PREDNISONE [Concomitant]
  5. TEARS PLUS [Concomitant]
  6. TEARS PLUS [Concomitant]
  7. TYLENOL (CAPLET) [Concomitant]
  8. PROTONIX [Concomitant]
  9. CALCIUM+D [Concomitant]
  10. CALCIUM+D [Concomitant]
  11. RESTASIS [Concomitant]

REACTIONS (1)
  - FOOD POISONING [None]
